FAERS Safety Report 9200345 (Version 2)
Quarter: 2013Q2

REPORT INFORMATION
  Report Type: Spontaneous
  Country: US (occurrence: TW)
  Receive Date: 20130329
  Receipt Date: 20130405
  Transmission Date: 20140414
  Serious: Yes (Other)
  Sender: FDA-Public Use
  Company Number: TW-JNJCH-2007318978

PATIENT
  Age: 11 Year
  Sex: Male

DRUGS (7)
  1. IBUPROFEN [Suspect]
     Indication: PAIN
     Dosage: 200 MG, AS NECESSARY
     Route: 048
     Dates: start: 20000531
  2. IBUPROFEN [Suspect]
     Indication: PYREXIA
  3. IBUPROFEN [Suspect]
     Indication: FASCIITIS
  4. CEFADROXIL [Suspect]
     Indication: ANTIBIOTIC PROPHYLAXIS
     Dosage: 500 MG, 3X/DAY
     Route: 048
     Dates: start: 20000531
  5. CEFADROXIL [Suspect]
     Indication: PYREXIA
  6. CEFADROXIL [Suspect]
     Indication: FASCIITIS
  7. PANADOL [Concomitant]

REACTIONS (3)
  - Angioedema [Recovered/Resolved]
  - Bronchospasm [Recovered/Resolved]
  - Urticaria [Recovered/Resolved]
